FAERS Safety Report 5492472-9 (Version None)
Quarter: 2007Q4

REPORT INFORMATION
  Report Type: 
  Country: None (occurrence: None)
  Receive Date: 20071015
  Receipt Date: 20070823
  Transmission Date: 20080405
  Serious: No
  Sender: FDA-Public Use
  Company Number: 2007SP002955

PATIENT
  Age: 73 Year
  Sex: Female
  Weight: 63.5036 kg

DRUGS (6)
  1. LUNESTA [Suspect]
     Indication: INSOMNIA
     Dosage: 2 MG; ORAL
     Route: 048
     Dates: start: 20070818
  2. NEXIUM [Concomitant]
  3. ASMANEX TWISTHALER [Concomitant]
  4. SINGULAIR [Concomitant]
  5. ESTROGENS CONJUGATED [Concomitant]
  6. DESLORATADINE [Concomitant]

REACTIONS (3)
  - DYSGEUSIA [None]
  - FATIGUE [None]
  - SOMNOLENCE [None]
